FAERS Safety Report 7131231-8 (Version None)
Quarter: 2010Q4

REPORT INFORMATION
  Report Type: 
  Country: None (occurrence: None)
  Receive Date: 20101201
  Receipt Date: 20101126
  Transmission Date: 20110411
  Serious: Yes (Other)
  Sender: FDA-Public Use
  Company Number: FR-BRISTOL-MYERS SQUIBB COMPANY-14845861

PATIENT
  Age: 73 Year
  Sex: Male
  Weight: 63 kg

DRUGS (4)
  1. REYATAZ [Suspect]
     Indication: ACQUIRED IMMUNODEFICIENCY SYNDROME
     Dates: start: 20050716, end: 20100804
  2. ISENTRESS [Suspect]
     Indication: ACQUIRED IMMUNODEFICIENCY SYNDROME
     Dosage: TABS
     Dates: start: 20090429
  3. INTELENCE [Suspect]
     Indication: ANTIRETROVIRAL THERAPY
  4. CELSENTRI [Suspect]
     Indication: ANTIRETROVIRAL THERAPY

REACTIONS (3)
  - CORONARY ARTERY DISEASE [None]
  - LIPODYSTROPHY ACQUIRED [None]
  - RENAL FAILURE ACUTE [None]
